FAERS Safety Report 16834445 (Version 1)
Quarter: 2019Q3

REPORT INFORMATION
  Report Type: Spontaneous
  Country: GB (occurrence: GB)
  Receive Date: 20190920
  Receipt Date: 20190920
  Transmission Date: 20191005
  Serious: Yes (Other)
  Sender: FDA-Public Use
  Company Number: GB-009507513-1909GBR007348

PATIENT
  Sex: Female

DRUGS (7)
  1. ACETAMINOPHEN. [Concomitant]
     Active Substance: ACETAMINOPHEN
  2. JANUVIA [Suspect]
     Active Substance: SITAGLIPTIN PHOSPHATE
     Indication: DIABETES MELLITUS
     Dosage: 100 MILLIGRAM, QD
     Route: 048
  3. RISPERIDONE. [Concomitant]
     Active Substance: RISPERIDONE
  4. LANSOPRAZOLE. [Concomitant]
     Active Substance: LANSOPRAZOLE
  5. BISOPROLOL [Concomitant]
     Active Substance: BISOPROLOL
  6. METFORMIN [Concomitant]
     Active Substance: METFORMIN HYDROCHLORIDE
  7. CARBAMAZEPINE. [Concomitant]
     Active Substance: CARBAMAZEPINE

REACTIONS (6)
  - Epilepsy [Not Recovered/Not Resolved]
  - Cardiac disorder [Not Recovered/Not Resolved]
  - Wrong technique in product usage process [Unknown]
  - Dementia [Not Recovered/Not Resolved]
  - Product dose omission [Unknown]
  - Food refusal [Unknown]
